FAERS Safety Report 6379354-5 (Version None)
Quarter: 2009Q3

REPORT INFORMATION
  Report Type: 
  Country: None (occurrence: None)
  Receive Date: 20090923
  Receipt Date: 20090923
  Transmission Date: 20100115
  Serious: Yes (Life-Threatening, Hospitalization)
  Sender: FDA-Public Use
  Company Number: None

PATIENT
  Age: 80 Year
  Sex: Female
  Weight: 98 kg

DRUGS (11)
  1. WARFARIN [Suspect]
     Indication: DEEP VEIN THROMBOSIS
     Dosage: 7.5/5MG PO Q OD, PTA
  2. ALLOPURINOL [Concomitant]
  3. COLACE [Concomitant]
  4. FLOMAX [Concomitant]
  5. HYDRALAZINE [Concomitant]
  6. IRON DEXTRAN [Concomitant]
  7. LASIX [Concomitant]
  8. LIPITOR [Concomitant]
  9. LISINOPRIL [Concomitant]
  10. LOPRESSOR [Concomitant]
  11. NORVASC [Concomitant]

REACTIONS (2)
  - ANEURYSM [None]
  - RETROPERITONEAL HAEMORRHAGE [None]
